FAERS Safety Report 4972883-8 (Version None)
Quarter: 2006Q2

REPORT INFORMATION
  Report Type: 
  Country: None (occurrence: None)
  Receive Date: 20060410
  Receipt Date: 20060320
  Transmission Date: 20061013
  Serious: Yes (Hospitalization, Other)
  Sender: FDA-Public Use
  Company Number: US200603005449

PATIENT
  Age: 57 Year

DRUGS (11)
  1. ZYPREXA [Suspect]
     Indication: BIPOLAR I DISORDER
     Dosage: 5 + 10 MG, DAILY (1/D)
     Dates: start: 19990111, end: 20000113
  2. ZYPREXA [Suspect]
     Indication: BIPOLAR I DISORDER
     Dosage: 5 + 10 MG, DAILY (1/D)
     Dates: start: 19990415
  3. ZYPREXA [Suspect]
     Indication: BIPOLAR I DISORDER
     Dosage: 5 + 10 MG, DAILY (1/D)
     Dates: start: 19990529
  4. PREMARIN [Concomitant]
  5. TORSEMIDE [Concomitant]
  6. SPIRONOLACTONE [Concomitant]
  7. K-DUR 10 [Concomitant]
  8. ESOMEPRAZOLE (ESOMEPRAZOLE) [Concomitant]
  9. ZOCOR [Concomitant]
  10. TRILEPTAL [Concomitant]
  11. DILTIAZEM [Concomitant]

REACTIONS (9)
  - ANAEMIA [None]
  - CHEST PAIN [None]
  - DIABETES MELLITUS [None]
  - GASTROINTESTINAL HAEMORRHAGE [None]
  - PULMONARY EMBOLISM [None]
  - SYNCOPE [None]
  - ULCER HAEMORRHAGE [None]
  - WEIGHT DECREASED [None]
  - WEIGHT INCREASED [None]
